FAERS Safety Report 10636687 (Version 3)
Quarter: 2015Q1

REPORT INFORMATION
  Report Type: Spontaneous
  Country: FR (occurrence: FR)
  Receive Date: 20141208
  Receipt Date: 20150321
  Transmission Date: 20150720
  Serious: Yes (Hospitalization)
  Sender: FDA-Public Use
  Company Number: FR-AMGEN-FRASP2014093665

PATIENT
  Age: 69 Year
  Sex: Female

DRUGS (7)
  1. MOPRAL                             /00661201/ [Concomitant]
     Active Substance: OMEPRAZOLE SODIUM
     Dosage: 20 MG, UNK
  2. DOLIPRANE [Concomitant]
     Active Substance: ACETAMINOPHEN
  3. XGEVA [Suspect]
     Active Substance: DENOSUMAB
     Indication: OSTEOPOROSIS
     Dosage: 120 MG (1 DF), QMO
     Route: 058
     Dates: start: 201309
  4. DETENSIEL                          /00802601/ [Suspect]
     Active Substance: BISOPROLOL FUMARATE
     Indication: HYPERTENSION
     Dosage: 0.5 DF(10 MG), QD
     Route: 048
     Dates: start: 200902
  5. RISPERDAL [Suspect]
     Active Substance: RISPERIDONE
     Indication: OSTEOPOROSIS
     Dosage: 2 MG (1 DF), QD
     Route: 048
     Dates: start: 200902
  6. FEMARA [Suspect]
     Active Substance: LETROZOLE
     Indication: BREAST CANCER
     Dosage: 2.5 MG (1 DF), QD
     Route: 048
     Dates: start: 20090312
  7. ACUPAN [Concomitant]
     Active Substance: NEFOPAM HYDROCHLORIDE

REACTIONS (2)
  - Dyspnoea [Not Recovered/Not Resolved]
  - Disease progression [Not Recovered/Not Resolved]

NARRATIVE: CASE EVENT DATE: 20141110
